FAERS Safety Report 15578713 (Version 6)
Quarter: 2018Q4

REPORT INFORMATION
  Report Type: Report from Study
  Country: US (occurrence: US)
  Receive Date: 20181102
  Receipt Date: 20181228
  Transmission Date: 20190205
  Serious: Yes (Life-Threatening, Hospitalization)
  Sender: FDA-Public Use
  Company Number: US-ROCHE-1491900

PATIENT
  Age: 47 Year
  Sex: Male
  Weight: 102.5 kg

DRUGS (195)
  1. ACETAMINOPHEN. [Concomitant]
     Active Substance: ACETAMINOPHEN
     Indication: PREMEDICATION
     Dosage: INDICATION: PREMEDICATION
     Route: 065
     Dates: start: 20121227
  2. TYLENOL [Concomitant]
     Active Substance: ACETAMINOPHEN
     Dosage: 23/MAR/2016, 24/AUG/2016, 16/FEB/2017, 08/FEB/2018, 08/MAR/2016,19/JUL/2018
     Route: 065
  3. AMBIEN [Concomitant]
     Active Substance: ZOLPIDEM TARTRATE
     Indication: SLEEP APNOEA SYNDROME
     Route: 065
     Dates: start: 20131122, end: 201410
  4. AMPYRA [Concomitant]
     Active Substance: DALFAMPRIDINE
     Indication: MULTIPLE SCLEROSIS
     Route: 065
     Dates: start: 201202, end: 20131116
  5. BACLOFEN. [Concomitant]
     Active Substance: BACLOFEN
     Indication: MUSCLE SPASTICITY
     Route: 065
     Dates: start: 2009, end: 20140817
  6. BACLOFEN. [Concomitant]
     Active Substance: BACLOFEN
     Route: 065
     Dates: start: 20140825, end: 201410
  7. FAMOTIDINE. [Concomitant]
     Active Substance: FAMOTIDINE
     Indication: NAUSEA
     Route: 065
     Dates: start: 20130913
  8. GABAPENTIN. [Concomitant]
     Active Substance: GABAPENTIN
     Route: 065
     Dates: start: 20181020, end: 20181025
  9. HYDROCORTISONE VALERATE CREAM [Concomitant]
     Indication: ECZEMA
     Dosage: 1 APPLICATION
     Route: 065
     Dates: start: 20121226, end: 201410
  10. MORPHINE [Concomitant]
     Active Substance: MORPHINE
     Route: 065
     Dates: start: 201507, end: 20160207
  11. DIPHENHYDRAMINE. [Concomitant]
     Active Substance: DIPHENHYDRAMINE
     Route: 065
     Dates: start: 20130628
  12. MIRALAX [Concomitant]
     Active Substance: POLYETHYLENE GLYCOL 3350
     Indication: CONSTIPATION PROPHYLAXIS
     Route: 065
     Dates: start: 20131213, end: 20140227
  13. MIRALAX [Concomitant]
     Active Substance: POLYETHYLENE GLYCOL 3350
     Route: 065
     Dates: start: 20181023
  14. AMBIEN [Concomitant]
     Active Substance: ZOLPIDEM TARTRATE
     Indication: SLEEP APNOEA SYNDROME
     Route: 065
     Dates: start: 20131122
  15. CIPRO [Concomitant]
     Active Substance: CIPROFLOXACIN HYDROCHLORIDE
     Indication: PYREXIA
     Route: 065
     Dates: start: 201611, end: 201611
  16. COLACE [Concomitant]
     Active Substance: DOCUSATE SODIUM
     Route: 065
     Dates: start: 20140930, end: 20141016
  17. METOPROLOL TARTRATE. [Concomitant]
     Active Substance: METOPROLOL TARTRATE
     Indication: HYPERTENSION
     Route: 065
     Dates: start: 201510, end: 201603
  18. PEPCID (UNITED STATES) [Concomitant]
     Indication: NAUSEA
     Route: 065
     Dates: start: 20160304
  19. PHENYLEPHRINE [Concomitant]
     Active Substance: PHENYLEPHRINE\PHENYLEPHRINE HYDROCHLORIDE
     Dosage: BACLOFEN PUMP PLACEMENT
     Route: 065
     Dates: start: 20160129, end: 20160129
  20. ROCURONIUM [Concomitant]
     Active Substance: ROCURONIUM BROMIDE
     Dosage: BACLOFEN PUMP PLACEMENT
     Route: 065
     Dates: start: 20160129, end: 20160129
  21. SODIUM CHLORIDE. [Concomitant]
     Active Substance: SODIUM CHLORIDE
     Indication: ACUTE KIDNEY INJURY
     Route: 065
     Dates: start: 20141004, end: 20141004
  22. XYLOCAINE [Concomitant]
     Active Substance: LIDOCAINE HYDROCHLORIDE
     Indication: VOMITING
  23. INFLUENZA VACCINE [Concomitant]
     Active Substance: INFLUENZA VIRUS VACCINE
     Dosage: ONCE FOR 6 MONTHS
     Route: 030
  24. ALBUMIN HUMAN [Concomitant]
     Active Substance: ALBUMIN HUMAN
     Route: 042
     Dates: start: 20181020
  25. PLACEBO [Suspect]
     Active Substance: UNSPECIFIED INGREDIENT
     Route: 042
     Dates: start: 20130110, end: 20130110
  26. PLACEBO [Suspect]
     Active Substance: UNSPECIFIED INGREDIENT
     Route: 042
     Dates: start: 20140513, end: 20140513
  27. OCRELIZUMAB. [Suspect]
     Active Substance: OCRELIZUMAB
     Indication: PRIMARY PROGRESSIVE MULTIPLE SCLEROSIS
     Dosage: IV OCRELIZUMAB 300 MG, ON DAY 1 AND 15 OF FIRST 24 WEEK CYCLES AND THEN SINGLE INFUSION OF 600 MG FO
     Route: 042
     Dates: start: 20160308
  28. METHYLPREDNISOLONE. [Concomitant]
     Active Substance: METHYLPREDNISOLONE
     Indication: PREMEDICATION
     Route: 065
     Dates: start: 20121227
  29. METHYLPREDNISOLONE. [Concomitant]
     Active Substance: METHYLPREDNISOLONE
     Route: 065
     Dates: start: 20130628
  30. METHYLPREDNISOLONE. [Concomitant]
     Active Substance: METHYLPREDNISOLONE
     Route: 065
     Dates: start: 20131216
  31. TYLENOL [Concomitant]
     Active Substance: ACETAMINOPHEN
     Route: 065
     Dates: start: 20130628
  32. ASPIRIN. [Concomitant]
     Active Substance: ASPIRIN
     Route: 065
     Dates: start: 201603, end: 20181018
  33. BACLOFEN. [Concomitant]
     Active Substance: BACLOFEN
     Route: 065
     Dates: start: 20140825
  34. BACLOFEN. [Concomitant]
     Active Substance: BACLOFEN
     Route: 065
     Dates: start: 201410, end: 20160209
  35. BACLOFEN. [Concomitant]
     Active Substance: BACLOFEN
     Route: 065
     Dates: start: 20181025
  36. FAMOTIDINE. [Concomitant]
     Active Substance: FAMOTIDINE
     Route: 065
     Dates: start: 20181025
  37. GABAPENTIN. [Concomitant]
     Active Substance: GABAPENTIN
     Route: 065
     Dates: start: 20160131, end: 20160202
  38. HYDROCHLOROTHIAZIDE. [Concomitant]
     Active Substance: HYDROCHLOROTHIAZIDE
     Indication: HYPERTENSION
     Dosage: HYPERTENSION
     Route: 065
     Dates: start: 2007
  39. METHADONE [Concomitant]
     Active Substance: METHADONE HYDROCHLORIDE
     Indication: PAIN
  40. MORPHINE [Concomitant]
     Active Substance: MORPHINE
     Route: 065
     Dates: start: 20161021, end: 20161021
  41. OMEPRAZOLE. [Concomitant]
     Active Substance: OMEPRAZOLE
     Indication: NAUSEA
     Route: 065
     Dates: start: 20130708, end: 201507
  42. OMEPRAZOLE. [Concomitant]
     Active Substance: OMEPRAZOLE
     Indication: GASTROOESOPHAGEAL REFLUX DISEASE
     Route: 065
     Dates: start: 20141016, end: 201507
  43. SERTRALINE [Concomitant]
     Active Substance: SERTRALINE HYDROCHLORIDE
     Indication: DEPRESSION
     Route: 065
     Dates: start: 2009, end: 20150730
  44. WELLBUTRIN XL [Concomitant]
     Active Substance: BUPROPION HYDROCHLORIDE
     Indication: DEPRESSION
     Route: 065
     Dates: start: 20140812, end: 201606
  45. DIPHENHYDRAMINE. [Concomitant]
     Active Substance: DIPHENHYDRAMINE
     Route: 065
     Dates: start: 20130611
  46. DIPHENHYDRAMINE. [Concomitant]
     Active Substance: DIPHENHYDRAMINE
     Route: 065
     Dates: start: 20140513
  47. BISACODYL. [Concomitant]
     Active Substance: BISACODYL
     Indication: CONSTIPATION
     Route: 065
     Dates: start: 20141016, end: 201507
  48. FENTANYL. [Concomitant]
     Active Substance: FENTANYL
     Dosage: PROPHYLAXIS TO BACLOFEN PUMP PLACEMENT
     Route: 065
     Dates: start: 20160129, end: 20160211
  49. HEPARIN [Concomitant]
     Active Substance: HEPARIN SODIUM
     Route: 065
     Dates: start: 20140930, end: 20141016
  50. MAALOX (CALCIUM CARBONATE) [Concomitant]
     Indication: NAUSEA
     Dosage: INDICATION: INTERMITTENT NAUSEA
     Route: 065
     Dates: start: 20130913, end: 20130913
  51. PEPCID (UNITED STATES) [Concomitant]
     Indication: VOMITING
     Route: 065
     Dates: start: 20130913, end: 20130913
  52. SENNA [Concomitant]
     Active Substance: SENNA LEAF\SENNOSIDES\SENNOSIDES A AND B
     Indication: CONSTIPATION
     Dosage: EVERY EVENING
     Route: 065
  53. SENNA [Concomitant]
     Active Substance: SENNA LEAF\SENNOSIDES\SENNOSIDES A AND B
     Route: 065
     Dates: start: 201602
  54. ZYVOX [Concomitant]
     Active Substance: LINEZOLID
     Indication: BACTERIAL INFECTION
     Route: 065
     Dates: start: 201705, end: 201705
  55. HEPARIN [Concomitant]
     Active Substance: HEPARIN SODIUM
     Indication: PNEUMONIA
     Route: 058
     Dates: start: 20140930, end: 20141016
  56. PITRESSIN [Concomitant]
     Active Substance: VASOPRESSIN
     Dosage: 2.4 UNITS/HOUR
     Route: 042
     Dates: end: 20181020
  57. LEVOPHED [Concomitant]
     Active Substance: NOREPINEPHRINE BITARTRATE
     Dosage: IN NS 250ML (0.-30 MCG/MINUTE)
     Route: 042
     Dates: end: 20181020
  58. PLACEBO [Suspect]
     Active Substance: UNSPECIFIED INGREDIENT
     Indication: PRIMARY PROGRESSIVE MULTIPLE SCLEROSIS
     Dosage: DAYS 1 AND 15 OF EACH 24-WEEK CYCLE (AS PER PROTOCOL).?INFUSION INTERRUPTED FOR 10 MINUTES DUE TO TH
     Route: 042
     Dates: start: 20121227, end: 20121227
  59. PLACEBO [Suspect]
     Active Substance: UNSPECIFIED INGREDIENT
     Route: 042
     Dates: start: 20131202, end: 20131202
  60. METHYLPREDNISOLONE. [Concomitant]
     Active Substance: METHYLPREDNISOLONE
     Route: 065
     Dates: start: 20130611
  61. METHYLPREDNISOLONE. [Concomitant]
     Active Substance: METHYLPREDNISOLONE
     Dosage: INDICATION : HOSPITALISATION DUE TO MS WORSENING
     Route: 065
     Dates: start: 20131115, end: 20131119
  62. TYLENOL [Concomitant]
     Active Substance: ACETAMINOPHEN
     Route: 065
     Dates: start: 20131216
  63. ADVIL [Concomitant]
     Active Substance: IBUPROFEN
     Indication: PAIN
  64. MORPHINE [Concomitant]
     Active Substance: MORPHINE
     Indication: PAIN
     Route: 065
     Dates: start: 201602, end: 20181018
  65. NAPROXEN. [Concomitant]
     Active Substance: NAPROXEN
     Indication: MULTIPLE SCLEROSIS
     Route: 065
     Dates: start: 20140102, end: 20140728
  66. DIPHENHYDRAMINE. [Concomitant]
     Active Substance: DIPHENHYDRAMINE
     Route: 065
     Dates: start: 20121227
  67. CEFUROXIME. [Concomitant]
     Active Substance: CEFUROXIME
     Route: 065
     Dates: start: 20160129, end: 20160129
  68. COLACE [Concomitant]
     Active Substance: DOCUSATE SODIUM
     Route: 065
     Dates: start: 20160202, end: 20180211
  69. DAKINS FULL [Concomitant]
     Active Substance: SODIUM HYPOCHLORITE
     Indication: DECUBITUS ULCER
     Route: 065
     Dates: start: 20150408, end: 201601
  70. DILAUDID [Concomitant]
     Active Substance: HYDROMORPHONE HYDROCHLORIDE
     Dosage: PROPHYLAXIS TO BACLOFEN PUMP PLACEMENT
     Route: 065
     Dates: start: 20160129, end: 20160211
  71. BISACODYL. [Concomitant]
     Active Substance: BISACODYL
     Indication: CONSTIPATION
     Route: 065
     Dates: start: 20160129, end: 20160211
  72. GLYCOPYRROLATE. [Concomitant]
     Active Substance: GLYCOPYRROLATE
     Route: 065
     Dates: start: 20160129, end: 20160129
  73. NIACIN. [Concomitant]
     Active Substance: NIACIN
     Indication: HYPERLIPIDAEMIA
     Route: 065
     Dates: start: 20171220, end: 20181018
  74. SENNA [Concomitant]
     Active Substance: SENNA LEAF\SENNOSIDES\SENNOSIDES A AND B
     Route: 065
     Dates: start: 20141016, end: 201507
  75. SODIUM CHLORIDE. [Concomitant]
     Active Substance: SODIUM CHLORIDE
     Indication: PNEUMONIA
     Route: 065
     Dates: start: 20140929, end: 20141004
  76. SODIUM CHLORIDE. [Concomitant]
     Active Substance: SODIUM CHLORIDE
     Indication: VOMITING
     Route: 065
     Dates: start: 20160303, end: 20160303
  77. SILVER NITRATE. [Concomitant]
     Active Substance: SILVER NITRATE
     Indication: DECUBITUS ULCER
     Route: 061
     Dates: start: 20161021, end: 20161021
  78. VANCOCIN [Concomitant]
     Active Substance: VANCOMYCIN HYDROCHLORIDE
     Dosage: PROPHYLAXIS TO BACLOFEN PUMP PLACEMENT
     Route: 065
     Dates: start: 20160129, end: 20160211
  79. ACETAMINOPHEN. [Concomitant]
     Active Substance: ACETAMINOPHEN
     Indication: PYREXIA
     Dosage: PROPHYLAXIS TO BACLOFEN PUMP PLACEMENT
     Route: 065
     Dates: start: 20160201, end: 20160201
  80. METHYLPREDNISOLONE. [Concomitant]
     Active Substance: METHYLPREDNISOLONE
     Route: 065
     Dates: start: 20131202
  81. METHYLPREDNISOLONE. [Concomitant]
     Active Substance: METHYLPREDNISOLONE
     Route: 065
     Dates: start: 20140527
  82. TYLENOL [Concomitant]
     Active Substance: ACETAMINOPHEN
     Route: 065
     Dates: start: 20140527
  83. BACLOFEN. [Concomitant]
     Active Substance: BACLOFEN
     Route: 065
     Dates: start: 20160106, end: 20160106
  84. FAMOTIDINE. [Concomitant]
     Active Substance: FAMOTIDINE
     Route: 065
     Dates: start: 20160304, end: 20181018
  85. FUROSEMIDE. [Concomitant]
     Active Substance: FUROSEMIDE
     Indication: OEDEMA PERIPHERAL
     Route: 065
     Dates: start: 20130612, end: 201410
  86. MORPHINE [Concomitant]
     Active Substance: MORPHINE
     Route: 065
     Dates: start: 201602, end: 20181018
  87. SERTRALINE [Concomitant]
     Active Substance: SERTRALINE HYDROCHLORIDE
     Route: 065
     Dates: start: 201507, end: 201608
  88. VITAMIN D2 [Concomitant]
     Active Substance: ERGOCALCIFEROL
     Indication: MULTIPLE SCLEROSIS
     Route: 065
     Dates: start: 20140127, end: 201507
  89. DIPHENHYDRAMINE. [Concomitant]
     Active Substance: DIPHENHYDRAMINE
     Route: 065
     Dates: start: 20140527
  90. DIPHENHYDRAMINE. [Concomitant]
     Active Substance: DIPHENHYDRAMINE
     Dosage: 23/MAR/2016, 24/AUG/2016, 16/FEB/2017, 08/FEB/2018, 08/MAR/2016,19/JUL/2018
     Route: 065
  91. MIRALAX [Concomitant]
     Active Substance: POLYETHYLENE GLYCOL 3350
     Route: 065
     Dates: start: 201605, end: 20181018
  92. BACITRACIN ZINC/POLYMYXIN B SULFATE [Concomitant]
     Route: 065
     Dates: start: 20141024, end: 201410
  93. COLACE [Concomitant]
     Active Substance: DOCUSATE SODIUM
     Indication: ILEUS
     Dosage: INDICATION: CONSTIPATION
     Route: 065
     Dates: start: 20131123, end: 20131212
  94. CYMBALTA [Concomitant]
     Active Substance: DULOXETINE HYDROCHLORIDE
     Indication: DECUBITUS ULCER
     Route: 048
     Dates: start: 201608
  95. HEPARIN [Concomitant]
     Active Substance: HEPARIN SODIUM
     Dosage: 5000 UNIT
     Route: 065
     Dates: start: 20181022, end: 20181024
  96. LEVAQUIN [Concomitant]
     Active Substance: LEVOFLOXACIN
     Dosage: PROPHYLAXIS TO BACLOFEN  PUMP PLACEMENT
     Route: 065
     Dates: start: 20160129, end: 20160211
  97. LIDOCAINE. [Concomitant]
     Active Substance: LIDOCAINE
     Route: 065
     Dates: start: 20181020, end: 20181023
  98. LOSARTAN. [Concomitant]
     Active Substance: LOSARTAN
     Indication: HYPERTENSION
     Route: 065
     Dates: start: 2007, end: 20150727
  99. METOPROLOL TARTRATE. [Concomitant]
     Active Substance: METOPROLOL TARTRATE
     Indication: SEPTIC SHOCK
     Route: 065
     Dates: start: 201603, end: 20181018
  100. MAALOX (CALCIUM CARBONATE) [Concomitant]
     Indication: VOMITING
     Route: 065
     Dates: start: 20160304, end: 20181018
  101. AQUAPHOR (UNITED STATES) [Concomitant]
     Route: 065
     Dates: start: 20141016
  102. SENOKOT [Concomitant]
     Active Substance: SENNOSIDES
     Indication: CONSTIPATION
     Route: 065
     Dates: start: 20160129, end: 20160211
  103. SODIUM CHLORIDE. [Concomitant]
     Active Substance: SODIUM CHLORIDE
     Indication: NAUSEA
     Route: 065
     Dates: start: 20180605, end: 20180605
  104. VANCOCIN [Concomitant]
     Active Substance: VANCOMYCIN HYDROCHLORIDE
     Route: 042
     Dates: start: 20181021, end: 20181021
  105. VANCOMYCIN [Concomitant]
     Active Substance: VANCOMYCIN
     Indication: PYREXIA
     Route: 065
     Dates: start: 20180606, end: 201806
  106. VANCOMYCIN [Concomitant]
     Active Substance: VANCOMYCIN
     Dosage: BACLOFEN PUMP PLACEMENT
     Route: 065
     Dates: start: 20160129, end: 20160129
  107. VITAMIN D3 [Concomitant]
     Active Substance: CHOLECALCIFEROL
     Dosage: 1000 UNIT
     Route: 065
     Dates: start: 201608, end: 201705
  108. VITAMIN D3 [Concomitant]
     Active Substance: CHOLECALCIFEROL
     Route: 065
     Dates: start: 20180502
  109. VOLTAREN [Concomitant]
     Active Substance: DICLOFENAC SODIUM
     Indication: PAIN
     Route: 065
     Dates: start: 20151008, end: 20160202
  110. ZOSYN [Concomitant]
     Active Substance: PIPERACILLIN SODIUM\TAZOBACTAM SODIUM
     Indication: BACTERIAL INFECTION
  111. MERREM [Concomitant]
     Active Substance: MEROPENEM
     Route: 042
     Dates: end: 20181020
  112. MAGNESIUM SULFATE. [Concomitant]
     Active Substance: MAGNESIUM SULFATE
     Route: 042
     Dates: start: 20181020
  113. FLU VACCINE [Concomitant]
     Active Substance: INFLUENZA VIRUS VACCINE
     Route: 065
     Dates: start: 20181022, end: 20181022
  114. ACETAMINOPHEN. [Concomitant]
     Active Substance: ACETAMINOPHEN
     Indication: MULTIPLE SCLEROSIS
     Dosage: INDICATION: MS PAIN
     Route: 065
     Dates: start: 20130629, end: 201410
  115. TYLENOL [Concomitant]
     Active Substance: ACETAMINOPHEN
     Route: 065
     Dates: start: 20130611
  116. TYLENOL [Concomitant]
     Active Substance: ACETAMINOPHEN
     Route: 065
     Dates: start: 20140513
  117. ADVIL [Concomitant]
     Active Substance: IBUPROFEN
     Indication: MULTIPLE SCLEROSIS
     Route: 065
     Dates: start: 2009, end: 201410
  118. ASPIRIN. [Concomitant]
     Active Substance: ASPIRIN
     Route: 065
     Dates: start: 20181025
  119. ATENOLOL. [Concomitant]
     Active Substance: ATENOLOL
     Indication: HYPERTENSION
     Route: 065
     Dates: start: 2007, end: 201507
  120. PRILOSEC [Concomitant]
     Active Substance: OMEPRAZOLE MAGNESIUM
     Indication: VOMITING
     Route: 065
     Dates: start: 20130419, end: 20130421
  121. ZOFRAN [Concomitant]
     Active Substance: ONDANSETRON HYDROCHLORIDE
     Indication: VOMITING
     Route: 065
     Dates: start: 20160304, end: 20160304
  122. DIPHENHYDRAMINE. [Concomitant]
     Active Substance: DIPHENHYDRAMINE
     Route: 065
     Dates: start: 20131216
  123. BACITRACIN. [Concomitant]
     Active Substance: BACITRACIN
     Route: 065
     Dates: start: 20180221, end: 201802
  124. HEPARIN [Concomitant]
     Active Substance: HEPARIN SODIUM
     Indication: PNEUMONIA
     Route: 065
     Dates: start: 20160201, end: 20160211
  125. LASIX [Concomitant]
     Active Substance: FUROSEMIDE
     Indication: OEDEMA PERIPHERAL
     Route: 065
     Dates: start: 201705, end: 20181018
  126. LASIX [Concomitant]
     Active Substance: FUROSEMIDE
     Route: 065
     Dates: start: 20181024
  127. METOPROLOL TARTRATE. [Concomitant]
     Active Substance: METOPROLOL TARTRATE
     Route: 065
     Dates: start: 201603
  128. METOPROLOL TARTRATE. [Concomitant]
     Active Substance: METOPROLOL TARTRATE
     Route: 065
     Dates: start: 20181025
  129. ONDANSETRON [Concomitant]
     Active Substance: ONDANSETRON
     Dosage: BACLOFEN PUMP PLACEMENT
     Route: 065
     Dates: start: 20160129, end: 20160129
  130. PROPOFOL. [Concomitant]
     Active Substance: PROPOFOL
     Dosage: BACLOFEN PUMP PLACEMENT
     Route: 065
     Dates: start: 20160129, end: 20180129
  131. METHYLPREDNISOLONE. [Concomitant]
     Active Substance: METHYLPREDNISOLONE
     Route: 065
     Dates: start: 20140513
  132. AMLODIPINE [Concomitant]
     Active Substance: AMLODIPINE BESYLATE
     Route: 065
     Dates: start: 201712, end: 20181018
  133. GABAPENTIN. [Concomitant]
     Active Substance: GABAPENTIN
     Indication: PAIN
     Route: 065
     Dates: start: 201410, end: 201601
  134. METHADONE [Concomitant]
     Active Substance: METHADONE HYDROCHLORIDE
     Indication: MULTIPLE SCLEROSIS
     Route: 065
     Dates: start: 20140529, end: 201507
  135. MORPHINE [Concomitant]
     Active Substance: MORPHINE
     Indication: MULTIPLE SCLEROSIS
     Route: 065
     Dates: start: 20130913, end: 20130913
  136. MORPHINE [Concomitant]
     Active Substance: MORPHINE
     Route: 065
     Dates: start: 201507, end: 20160129
  137. MORPHINE [Concomitant]
     Active Substance: MORPHINE
     Route: 065
     Dates: start: 20160208, end: 20160211
  138. MORPHINE [Concomitant]
     Active Substance: MORPHINE
     Dosage: AS REQUIRED
     Route: 048
  139. PEPCID (UNITED STATES) [Concomitant]
     Indication: NAUSEA
     Route: 065
     Dates: start: 20130913, end: 20130913
  140. TIZANIDINE. [Concomitant]
     Active Substance: TIZANIDINE
     Indication: MUSCLE SPASTICITY
     Route: 065
     Dates: start: 201312, end: 201410
  141. VITAMIN D2 [Concomitant]
     Active Substance: ERGOCALCIFEROL
     Route: 065
     Dates: start: 201402, end: 201507
  142. ZOFRAN [Concomitant]
     Active Substance: ONDANSETRON HYDROCHLORIDE
     Indication: NAUSEA
     Route: 065
     Dates: start: 20131121, end: 20131214
  143. BOTOX [Concomitant]
     Active Substance: ONABOTULINUMTOXINA
     Route: 065
     Dates: start: 20170518, end: 20170518
  144. COLACE [Concomitant]
     Active Substance: DOCUSATE SODIUM
     Route: 065
     Dates: start: 201507, end: 20160120
  145. DAKINS FULL [Concomitant]
     Active Substance: SODIUM HYPOCHLORITE
     Route: 065
     Dates: start: 20161121, end: 201708
  146. DEXTRAN 70/HYPROMELLOSE [Concomitant]
     Indication: DRY EYE
     Dosage: 1 DROP
     Route: 065
     Dates: start: 20141016, end: 201410
  147. LISINOPRIL. [Concomitant]
     Active Substance: LISINOPRIL
     Route: 065
     Dates: start: 20181023, end: 20181023
  148. NEOSTIGMINE. [Concomitant]
     Active Substance: NEOSTIGMINE METHYLSULFATE
     Dosage: BACLOFEN PUMP PLACEMENT
     Route: 065
     Dates: start: 20160129, end: 20160129
  149. VANCOMYCIN [Concomitant]
     Active Substance: VANCOMYCIN
     Route: 065
     Dates: start: 20160130, end: 20160202
  150. HEPARIN [Concomitant]
     Active Substance: HEPARIN SODIUM
     Route: 058
     Dates: end: 20181021
  151. PLACEBO [Suspect]
     Active Substance: UNSPECIFIED INGREDIENT
     Route: 042
     Dates: start: 20131216, end: 20131216
  152. PLACEBO [Suspect]
     Active Substance: UNSPECIFIED INGREDIENT
     Route: 042
     Dates: start: 20140527, end: 20140527
  153. OCRELIZUMAB. [Suspect]
     Active Substance: OCRELIZUMAB
     Dosage: 24/AUG/2017, 08/FEB/2018, 19/JUL/2018
     Route: 042
  154. METHYLPREDNISOLONE. [Concomitant]
     Active Substance: METHYLPREDNISOLONE
     Dosage: 23/MAR/2016, 24/AUG/2016, 16/FEB/2017, 08/FEB/2018, 08/MAR/2016,19/JUL/2018
     Route: 065
  155. AMLODIPINE [Concomitant]
     Active Substance: AMLODIPINE BESYLATE
     Indication: HYPERTENSION
     Route: 065
     Dates: start: 2007, end: 20150727
  156. ASPIRIN. [Concomitant]
     Active Substance: ASPIRIN
     Route: 065
     Dates: start: 20131213, end: 20140814
  157. NAPROXEN. [Concomitant]
     Active Substance: NAPROXEN
     Indication: PAIN
  158. OXYCODONE [Concomitant]
     Active Substance: OXYCODONE
     Indication: MULTIPLE SCLEROSIS
     Route: 065
     Dates: start: 20130629, end: 201410
  159. ZOFRAN [Concomitant]
     Active Substance: ONDANSETRON HYDROCHLORIDE
     Route: 065
     Dates: start: 201608
  160. DIPHENHYDRAMINE. [Concomitant]
     Active Substance: DIPHENHYDRAMINE
     Route: 065
     Dates: start: 20131202
  161. CEPHALEXIN. [Concomitant]
     Active Substance: CEPHALEXIN
     Indication: DECUBITUS ULCER
     Route: 065
     Dates: start: 201702, end: 201703
  162. DILAUDID [Concomitant]
     Active Substance: HYDROMORPHONE HYDROCHLORIDE
     Indication: HEADACHE
     Route: 065
     Dates: start: 20141004, end: 20141016
  163. PLASMALYTE [Concomitant]
     Active Substance: ELECTROLYTES NOS
     Dosage: PROPHYLAXIS TO BACLOFEN PUMP PLACEMENT
     Route: 065
     Dates: start: 20160129, end: 20160211
  164. ENULOSE [Concomitant]
     Active Substance: LACTULOSE
     Indication: CONSTIPATION
     Route: 065
     Dates: start: 201603, end: 201605
  165. LIDOCAINE. [Concomitant]
     Active Substance: LIDOCAINE
     Dosage: BACLOFEN PUMP TRIAL: 3 CC
     Route: 065
     Dates: start: 20160106, end: 20160106
  166. LISINOPRIL. [Concomitant]
     Active Substance: LISINOPRIL
     Indication: HYPERTENSION
     Route: 065
     Dates: start: 201611, end: 20171023
  167. LISINOPRIL. [Concomitant]
     Active Substance: LISINOPRIL
     Route: 065
     Dates: start: 20181025
  168. MAALOX (CALCIUM CARBONATE) [Concomitant]
     Indication: ILEUS
     Route: 065
     Dates: start: 20141005, end: 20141016
  169. SENOKOT [Concomitant]
     Active Substance: SENNOSIDES
     Dosage: AT BEDTIME
     Route: 048
     Dates: end: 20181020
  170. PLACEBO [Suspect]
     Active Substance: UNSPECIFIED INGREDIENT
     Route: 042
     Dates: start: 20130628, end: 20130628
  171. ACETAMINOPHEN. [Concomitant]
     Active Substance: ACETAMINOPHEN
     Indication: PAIN
     Route: 065
     Dates: start: 201611, end: 201611
  172. METHYLPREDNISOLONE. [Concomitant]
     Active Substance: METHYLPREDNISOLONE
     Route: 065
     Dates: start: 20130110
  173. TYLENOL [Concomitant]
     Active Substance: ACETAMINOPHEN
     Indication: PREMEDICATION
     Route: 048
     Dates: start: 20130110
  174. TYLENOL [Concomitant]
     Active Substance: ACETAMINOPHEN
     Route: 065
     Dates: start: 20131202
  175. TYLENOL [Concomitant]
     Active Substance: ACETAMINOPHEN
     Dosage: AS NEEDED
     Route: 048
  176. GABAPENTIN. [Concomitant]
     Active Substance: GABAPENTIN
     Indication: PAIN
     Route: 065
     Dates: start: 2011, end: 201410
  177. GABAPENTIN. [Concomitant]
     Active Substance: GABAPENTIN
     Route: 065
     Dates: start: 20160203, end: 20181018
  178. GABAPENTIN. [Concomitant]
     Active Substance: GABAPENTIN
     Route: 048
     Dates: end: 20181021
  179. GABAPENTIN. [Concomitant]
     Active Substance: GABAPENTIN
     Route: 065
     Dates: start: 20181025
  180. HYDROCHLOROTHIAZIDE. [Concomitant]
     Active Substance: HYDROCHLOROTHIAZIDE
     Indication: OEDEMA PERIPHERAL
     Dosage: INDICATION: EDEMA IN RIGHT LEG
     Route: 065
     Dates: start: 20130427
  181. MORPHINE [Concomitant]
     Active Substance: MORPHINE
     Route: 065
     Dates: start: 20160208, end: 20160211
  182. MORPHINE [Concomitant]
     Active Substance: MORPHINE
     Route: 065
     Dates: start: 20161021, end: 20161021
  183. NABUMETONE. [Concomitant]
     Active Substance: NABUMETONE
     Indication: PAIN
     Route: 065
     Dates: start: 20121226, end: 201410
  184. OXYCODONE [Concomitant]
     Active Substance: OXYCODONE
     Indication: PAIN
  185. DIPHENHYDRAMINE. [Concomitant]
     Active Substance: DIPHENHYDRAMINE
     Route: 065
     Dates: start: 20130110
  186. BENADRYL [Concomitant]
     Active Substance: DIPHENHYDRAMINE HYDROCHLORIDE
     Route: 065
     Dates: start: 20170824
  187. COLACE [Concomitant]
     Active Substance: DOCUSATE SODIUM
     Indication: CONSTIPATION PROPHYLAXIS
     Dosage: INDICATION: CONSTIPATION PROPHYLAXIS
     Route: 065
     Dates: start: 20131213, end: 20140227
  188. COMPAZINE [Concomitant]
     Active Substance: PROCHLORPERAZINE MALEATE
     Indication: NAUSEA
     Route: 065
     Dates: start: 20160129, end: 20160211
  189. HEPARIN [Concomitant]
     Active Substance: HEPARIN SODIUM
     Indication: PROPHYLAXIS
     Dosage: INDICATION: COAGULATION PROPHYLAXIS
     Route: 065
     Dates: start: 201311, end: 201311
  190. LISINOPRIL. [Concomitant]
     Active Substance: LISINOPRIL
     Route: 065
     Dates: start: 20171024, end: 20181018
  191. METOPROLOL TARTRATE. [Concomitant]
     Active Substance: METOPROLOL TARTRATE
     Route: 065
     Dates: start: 20181024
  192. VANCOMYCIN [Concomitant]
     Active Substance: VANCOMYCIN
     Route: 065
     Dates: start: 20160129, end: 20160202
  193. VITAMIN D3 [Concomitant]
     Active Substance: CHOLECALCIFEROL
     Dosage: 800 UNITS
     Route: 065
     Dates: start: 20160204, end: 20160211
  194. XYLOCAINE [Concomitant]
     Active Substance: LIDOCAINE HYDROCHLORIDE
     Indication: NAUSEA
     Route: 065
     Dates: start: 20160304, end: 20160304
  195. PLACEBO [Suspect]
     Active Substance: UNSPECIFIED INGREDIENT
     Route: 042
     Dates: start: 20130611, end: 20130611

REACTIONS (5)
  - Ileus [Recovered/Resolved with Sequelae]
  - Septic shock [Recovered/Resolved]
  - Pneumonia [Recovered/Resolved]
  - Septic shock [Recovered/Resolved]
  - Pneumonia [Recovered/Resolved]

NARRATIVE: CASE EVENT DATE: 20140929
